FAERS Safety Report 5147888-7 (Version None)
Quarter: 2006Q4

REPORT INFORMATION
  Report Type: 
  Country: None (occurrence: None)
  Receive Date: 20061110
  Receipt Date: 20061101
  Transmission Date: 20070319
  Serious: Yes (Hospitalization)
  Sender: FDA-Public Use
  Company Number: IT-JNJFOC-20061100056

PATIENT
  Age: 62 Year
  Sex: Male

DRUGS (5)
  1. LEVOFLOXACIN [Suspect]
     Indication: PNEUMONIA LEGIONELLA
     Route: 042
     Dates: start: 20060929, end: 20061009
  2. PIPERACILLIN AND TAZOBACTAM [Suspect]
     Indication: PNEUMONIA LEGIONELLA
     Route: 042
     Dates: start: 20060929, end: 20061009
  3. ALLOPURINOL [Concomitant]
     Route: 065
  4. PANTOPRAZOLE SODIUM [Concomitant]
     Route: 065
  5. TEICOPLANIN [Concomitant]
     Route: 065

REACTIONS (2)
  - INTRACARDIAC THROMBUS [None]
  - THROMBOCYTHAEMIA [None]
